FAERS Safety Report 17025976 (Version 2)
Quarter: 2019Q4

REPORT INFORMATION
  Report Type: Spontaneous
  Country: GB (occurrence: GB)
  Receive Date: 20191113
  Receipt Date: 20191128
  Transmission Date: 20200122
  Serious: Yes (Hospitalization)
  Sender: FDA-Public Use
  Company Number: GB-IPSEN BIOPHARMACEUTICALS, INC.-2019-21230

PATIENT
  Sex: Female

DRUGS (1)
  1. AZZALURE [Suspect]
     Active Substance: BOTULINUM TOXIN TYPE A
     Indication: SKIN COSMETIC PROCEDURE
     Dosage: NOT REPORTED
     Route: 065

REACTIONS (1)
  - Epilepsy [Unknown]
